FAERS Safety Report 5068238-0 (Version None)
Quarter: 2006Q3

REPORT INFORMATION
  Report Type: 
  Country: None (occurrence: None)
  Receive Date: 20060802
  Receipt Date: 20050616
  Transmission Date: 20061208
  Serious: No
  Sender: FDA-Public Use
  Company Number: US-BRISTOL-MYERS SQUIBB COMPANY-13006382

PATIENT
  Age: 69 Year
  Sex: Male

DRUGS (2)
  1. COUMADIN [Suspect]
     Dosage: TEMPORARILY INTERUPTED FOR TWO DAYS
  2. NEOSPORIN [Concomitant]
     Indication: OPEN WOUND
     Dates: start: 20050508

REACTIONS (2)
  - PROTHROMBIN LEVEL DECREASED [None]
  - RED BLOOD CELL COUNT INCREASED [None]
